FAERS Safety Report 18890532 (Version 1)
Quarter: 2021Q1

REPORT INFORMATION
  Report Type: Spontaneous
  Country: TN (occurrence: TN)
  Receive Date: 20210214
  Receipt Date: 20210214
  Transmission Date: 20210420
  Serious: Yes (Hospitalization, Other)
  Sender: FDA-Public Use
  Company Number: TN-UNICHEM PHARMACEUTICALS (USA) INC-UCM202102-000107

PATIENT
  Age: 50 Year
  Sex: Female

DRUGS (2)
  1. DIVALPROEX SODIUM. [Suspect]
     Active Substance: DIVALPROEX SODIUM
     Indication: BIPOLAR DISORDER
  2. PRAZEPAM [Concomitant]
     Active Substance: PRAZEPAM
     Indication: BIPOLAR DISORDER

REACTIONS (1)
  - Organising pneumonia [Recovering/Resolving]
